FAERS Safety Report 8730023 (Version 2)
Quarter: 2012Q4

REPORT INFORMATION
  Report Type: 
  Country: US (occurrence: US)
  Receive Date: 20120817
  Receipt Date: 20121116
  Transmission Date: 20130627
  Serious: No
  Sender: FDA-Public Use
  Company Number: US-GLAXOSMITHKLINE-A0983165A

PATIENT
  Age: 52 Year
  Sex: Female

DRUGS (1)
  1. VOTRIENT [Suspect]
     Indication: RENAL CANCER
     Dosage: 800MG In the morning
     Route: 065

REACTIONS (5)
  - Hypertension [Unknown]
  - Arthritis [Unknown]
  - Arthralgia [Unknown]
  - Laboratory test abnormal [Unknown]
  - Drug ineffective [Unknown]
